FAERS Safety Report 20746578 (Version 2)
Quarter: 2022Q3

REPORT INFORMATION
  Report Type: Spontaneous
  Country: US (occurrence: US)
  Receive Date: 20220425
  Receipt Date: 20220824
  Transmission Date: 20221027
  Serious: No
  Sender: FDA-Public Use
  Company Number: US-PFIZER INC-2016587382

PATIENT
  Age: 83 Year
  Sex: Female
  Weight: 68.04 kg

DRUGS (2)
  1. PREMARIN [Suspect]
     Active Substance: ESTROGENS, CONJUGATED
     Indication: Menopausal symptoms
     Dosage: 0.625 MG, 1X/DAY (ONE AT NIGHT)
     Route: 048
     Dates: start: 1988
  2. CITALOPRAM [Concomitant]
     Active Substance: CITALOPRAM HYDROBROMIDE
     Indication: Anxiety
     Dosage: 10MG HCR

REACTIONS (3)
  - Malaise [Unknown]
  - Weight decreased [Unknown]
  - Intentional dose omission [Unknown]
